FAERS Safety Report 15461047 (Version 2)
Quarter: 2018Q4

REPORT INFORMATION
  Report Type: Report from Study
  Country: US (occurrence: US)
  Receive Date: 20181003
  Receipt Date: 20181130
  Transmission Date: 20190204
  Serious: Yes (Other)
  Sender: FDA-Public Use
  Company Number: US-TESARO-2018-TSO0778-US

PATIENT
  Age: 65 Year
  Sex: Female

DRUGS (5)
  1. ZEJULA [Suspect]
     Active Substance: NIRAPARIB
     Indication: OVARIAN CANCER
     Dosage: 300 MG, QD
     Route: 048
     Dates: start: 20180919, end: 20180920
  2. ZEJULA [Suspect]
     Active Substance: NIRAPARIB
     Dosage: 100 MG, DAILY (BEDTIME)
     Route: 048
     Dates: start: 20180923, end: 201809
  3. ZOFRAN [Concomitant]
     Active Substance: ONDANSETRON HYDROCHLORIDE
     Indication: PRODUCT USED FOR UNKNOWN INDICATION
  4. ZEJULA [Suspect]
     Active Substance: NIRAPARIB
     Dosage: 200 MG, QHS WITHOUT FOOD
     Route: 048
     Dates: start: 201809
  5. ZEJULA [Suspect]
     Active Substance: NIRAPARIB
     Dosage: 300 MG, QD
     Route: 048
     Dates: start: 2018

REACTIONS (9)
  - Hypertension [Not Recovered/Not Resolved]
  - Increased appetite [Unknown]
  - Malaise [Not Recovered/Not Resolved]
  - Surgery [Unknown]
  - Pain in extremity [Unknown]
  - Prescribed underdose [Unknown]
  - Drug titration error [Unknown]
  - Intentional dose omission [Unknown]
  - Nausea [Not Recovered/Not Resolved]

NARRATIVE: CASE EVENT DATE: 201809
